FAERS Safety Report 9365736 (Version 1)
Quarter: 2013Q2

REPORT INFORMATION
  Report Type: Spontaneous
  Country: US (occurrence: US)
  Receive Date: 20130625
  Receipt Date: 20130625
  Transmission Date: 20140414
  Serious: No
  Sender: FDA-Public Use
  Company Number: US-009507513-1306USA009288

PATIENT
  Age: 48 Year
  Sex: Female

DRUGS (5)
  1. SAPHRIS [Suspect]
     Indication: DEPRESSION
     Dosage: 5 MG, QD
     Route: 060
  2. SAPHRIS [Suspect]
     Dosage: LESS THAN 1/4 OF 5 MG
     Route: 060
  3. SAPHRIS [Suspect]
     Dosage: 1/8 OF 5 MG
     Route: 060
  4. ALPRAZOLAM [Concomitant]
  5. CYMBALTA [Concomitant]

REACTIONS (7)
  - Chest discomfort [Unknown]
  - Restlessness [Unknown]
  - Insomnia [Unknown]
  - Dyspepsia [Unknown]
  - Anxiety [Unknown]
  - Underdose [Unknown]
  - Inappropriate schedule of drug administration [Unknown]
